FAERS Safety Report 7939522-5 (Version None)
Quarter: 2011Q4

REPORT INFORMATION
  Report Type: 
  Country: None (occurrence: None)
  Receive Date: 20111125
  Receipt Date: 20111115
  Transmission Date: 20120403
  Serious: Yes (Other)
  Sender: FDA-Public Use
  Company Number: US-ROCHE-792023

PATIENT
  Sex: Female
  Weight: 83.99 kg

DRUGS (4)
  1. ACCUTANE [Suspect]
     Indication: PRODUCT USED FOR UNKNOWN INDICATION
     Route: 065
     Dates: start: 20000201, end: 20000401
  2. CONTRACEPTIVE [Concomitant]
     Route: 048
     Dates: start: 19990101, end: 20010101
  3. CONTRACEPTIVE [Concomitant]
     Dates: start: 20070101
  4. ACCUTANE [Suspect]

REACTIONS (6)
  - CHOLANGITIS SCLEROSING [None]
  - DEPRESSION [None]
  - COLITIS ULCERATIVE [None]
  - RECTAL POLYP [None]
  - HAEMORRHOIDS [None]
  - IRRITABLE BOWEL SYNDROME [None]
